FAERS Safety Report 9684472 (Version 1)
Quarter: 2013Q4

REPORT INFORMATION
  Report Type: Spontaneous
  Country: US (occurrence: US)
  Receive Date: 20131112
  Receipt Date: 20131112
  Transmission Date: 20140711
  Serious: Yes (Other)
  Sender: FDA-Public Use
  Company Number: US-CUBIST PHARMACEUTICAL, INC.-2013CBST000363

PATIENT
  Sex: 0

DRUGS (8)
  1. CUBICIN [Suspect]
     Indication: STAPHYLOCOCCAL BACTERAEMIA
     Dosage: 8 MG/KG, UNK
     Route: 065
  2. CUBICIN [Suspect]
     Indication: CELLULITIS
  3. VANCOMYCIN [Suspect]
     Indication: STAPHYLOCOCCAL INFECTION
     Dosage: UNK UNK, UNK
     Route: 065
  4. VANCOMYCIN [Suspect]
     Indication: CELLULITIS
  5. GENTAMYCIN /00047101/ [Suspect]
     Indication: STAPHYLOCOCCAL INFECTION
     Dosage: UNK UNK, UNK
     Route: 065
  6. GENTAMYCIN /00047101/ [Suspect]
     Indication: CELLULITIS
  7. TEFLARO [Suspect]
     Indication: STAPHYLOCOCCAL INFECTION
     Dosage: 600 MG, Q12H
     Route: 065
  8. TEFLARO [Suspect]
     Indication: CELLULITIS
     Dosage: 400 MG, Q12H
     Route: 065
     Dates: start: 20130424

REACTIONS (1)
  - Renal impairment [Unknown]
